FAERS Safety Report 9285059 (Version 3)
Quarter: 2013Q4

REPORT INFORMATION
  Report Type: Spontaneous
  Country: US (occurrence: US)
  Receive Date: 20130513
  Receipt Date: 20131023
  Transmission Date: 20140711
  Serious: No
  Sender: FDA-Public Use
  Company Number: US-B.I. PHARMACEUTICALS,INC./RIDGEFIELD-2013-BI-13205BP

PATIENT
  Age: 82 Year
  Sex: Female
  Weight: 104.33 kg

DRUGS (7)
  1. PRADAXA [Suspect]
     Indication: ATRIAL FIBRILLATION
     Dosage: 300 MG
     Route: 048
     Dates: start: 201212, end: 201304
  2. ACETAMINOPHEN\CODEINE PHOSPHATE [Suspect]
     Dosage: 300MG/30MG
     Dates: start: 2013
  3. XARELTO [Suspect]
     Indication: ATRIAL FIBRILLATION
     Dosage: 20 MG
     Route: 048
     Dates: start: 201304
  4. ALPRAZOLAM [Concomitant]
     Indication: ANXIETY
     Route: 048
  5. METOPROLOL [Concomitant]
     Indication: HYPERTENSION
     Dosage: 50 MG
     Route: 048
  6. LOSARTAN/ HCT [Concomitant]
     Indication: HYPERTENSION
     Dosage: STRENGTH: 50/12.5 MG; DAILY DOSE: 50/12.5 MG
     Route: 048
  7. PROTONIX [Concomitant]
     Indication: GASTROOESOPHAGEAL REFLUX DISEASE
     Dosage: 40 MG
     Route: 048

REACTIONS (18)
  - Gingival bleeding [Not Recovered/Not Resolved]
  - Abdominal discomfort [Unknown]
  - Constipation [Not Recovered/Not Resolved]
  - Arthralgia [Not Recovered/Not Resolved]
  - Back pain [Recovered/Resolved]
  - Blood pressure increased [Recovered/Resolved]
  - Dizziness [Not Recovered/Not Resolved]
  - Dizziness [Not Recovered/Not Resolved]
  - Asthenia [Unknown]
  - Oral pain [Unknown]
  - Insomnia [Unknown]
  - Mouth haemorrhage [Not Recovered/Not Resolved]
  - Pain [Unknown]
  - Constipation [Unknown]
  - Decreased appetite [Unknown]
  - Dyspepsia [Unknown]
  - Wrong technique in drug usage process [Unknown]
  - Drug ineffective [Unknown]
